FAERS Safety Report 5120804-X (Version None)
Quarter: 2006Q4

REPORT INFORMATION
  Report Type: 
  Country: None (occurrence: None)
  Receive Date: 20061005
  Receipt Date: 20060506
  Transmission Date: 20070319
  Serious: Yes (Other)
  Sender: FDA-Public Use
  Company Number: US-BAYER-200611963BCC

PATIENT
  Sex: Female

DRUGS (2)
  1. ASPIRIN [Suspect]
     Indication: PRE-ECLAMPSIA
     Route: 048
     Dates: start: 20050101
  2. PRENATAL VITAMINS [Concomitant]

REACTIONS (3)
  - BACTERIAL TOXAEMIA [None]
  - NORMAL DELIVERY [None]
  - PRE-ECLAMPSIA [None]
